FAERS Safety Report 15245054 (Version 2)
Quarter: 2018Q3

REPORT INFORMATION
  Report Type: Spontaneous
  Country: US (occurrence: US)
  Receive Date: 20180806
  Receipt Date: 20180821
  Transmission Date: 20181010
  Serious: Yes (Hospitalization, Other)
  Sender: FDA-Public Use
  Company Number: US-TEVA-2018-US-937932

PATIENT
  Age: 65 Year
  Sex: Male

DRUGS (2)
  1. ADALIMUMAB [Suspect]
     Active Substance: ADALIMUMAB
     Indication: PSORIATIC ARTHROPATHY
     Route: 065
  2. PREDNISONE. [Suspect]
     Active Substance: PREDNISONE
     Indication: SARCOIDOSIS
     Route: 048

REACTIONS (4)
  - Weight decreased [Recovering/Resolving]
  - Sarcoidosis [Recovering/Resolving]
  - Lymph gland infection [Recovering/Resolving]
  - Mediastinal abscess [Recovering/Resolving]
